FAERS Safety Report 17488493 (Version 1)
Quarter: 2020Q1

REPORT INFORMATION
  Report Type: Spontaneous
  Country: US (occurrence: US)
  Receive Date: 20200302
  Receipt Date: 20200302
  Transmission Date: 20200409
  Serious: No
  Sender: FDA-Public Use
  Company Number: None

PATIENT
  Age: 16 Year
  Sex: Male
  Weight: 131.09 kg

DRUGS (6)
  1. INVEGA TRINZA [Suspect]
     Active Substance: PALIPERIDONE PALMITATE
     Indication: BIPOLAR DISORDER
     Route: 030
     Dates: start: 20191031
  2. LISINOPRIL 5 MG [Concomitant]
     Active Substance: LISINOPRIL
     Dates: start: 20200130
  3. INVEGA SUSTENNA [Suspect]
     Active Substance: PALIPERIDONE PALMITATE
     Indication: BIPOLAR DISORDER
     Dosage: FREQUENCY Q3 MONTHS
     Route: 030
     Dates: start: 20190419, end: 20191004
  4. FOCALIN XR 15 MG QD [Concomitant]
     Dates: start: 20191205, end: 20191229
  5. GUANFACINE ER 4 MG 00 [Concomitant]
     Dates: start: 20160502
  6. INVEGA TRINZA [Suspect]
     Active Substance: PALIPERIDONE PALMITATE
     Indication: NARCISSISTIC PERSONALITY DISORDER
     Route: 030
     Dates: start: 20191031

REACTIONS (5)
  - Cyst [None]
  - Papule [None]
  - Abscess [None]
  - Swelling [None]
  - Keratosis pilaris [None]

NARRATIVE: CASE EVENT DATE: 20200126
